FAERS Safety Report 8382329-8 (Version None)
Quarter: 2012Q2

REPORT INFORMATION
  Report Type: 
  Country: None (occurrence: None)
  Receive Date: 20120524
  Receipt Date: 20120515
  Transmission Date: 20120825
  Serious: Yes (Hospitalization)
  Sender: FDA-Public Use
  Company Number: US-JNJFOC-20120513510

PATIENT
  Age: 71 Year
  Sex: Female
  Weight: 101.61 kg

DRUGS (3)
  1. STELARA [Suspect]
     Route: 058
     Dates: start: 20120110, end: 20120110
  2. STELARA [Suspect]
     Indication: PSORIASIS
     Route: 058
     Dates: start: 20120213, end: 20120213
  3. STELARA [Suspect]
     Route: 058
     Dates: start: 20100901, end: 20110101

REACTIONS (2)
  - MALAISE [None]
  - CEREBROVASCULAR ACCIDENT [None]
